FAERS Safety Report 17593123 (Version 1)
Quarter: 2020Q1

REPORT INFORMATION
  Report Type: Spontaneous
  Country: FR (occurrence: FR)
  Receive Date: 20200327
  Receipt Date: 20200327
  Transmission Date: 20200409
  Serious: Yes (Hospitalization)
  Sender: FDA-Public Use
  Company Number: FR-PFIZER INC-2020126982

PATIENT
  Age: 86 Year
  Sex: Male

DRUGS (4)
  1. SERESTA [Suspect]
     Active Substance: OXAZEPAM
     Indication: HALLUCINATION
     Dosage: 30 MG, UNK
     Route: 048
     Dates: start: 202001
  2. HYPNOVEL [MIDAZOLAM HYDROCHLORIDE] [Suspect]
     Active Substance: MIDAZOLAM HYDROCHLORIDE
     Indication: HALLUCINATION
     Dosage: 0.2 MG, UNK
     Route: 042
     Dates: start: 20200128
  3. TEMESTA [LORAZEPAM] [Suspect]
     Active Substance: LORAZEPAM
     Indication: HALLUCINATION
     Dosage: 7.5 MG, UNK
     Route: 048
     Dates: start: 202001
  4. XANAX [Suspect]
     Active Substance: ALPRAZOLAM
     Indication: HALLUCINATION
     Dosage: UNK
     Route: 048
     Dates: start: 202001

REACTIONS (4)
  - Product use in unapproved indication [Unknown]
  - Off label use [Unknown]
  - Somnolence [Not Recovered/Not Resolved]
  - Pneumonia aspiration [Not Recovered/Not Resolved]

NARRATIVE: CASE EVENT DATE: 202001
